FAERS Safety Report 4698364-7 (Version None)
Quarter: 2005Q2

REPORT INFORMATION
  Report Type: 
  Country: None (occurrence: None)
  Receive Date: 20050623
  Receipt Date: 20050601
  Transmission Date: 20051028
  Serious: Yes (Other)
  Sender: FDA-Public Use
  Company Number: JP-ROCHE-407053

PATIENT
  Age: 21 Year
  Sex: Male

DRUGS (1)
  1. ROCEPHIN [Suspect]
     Indication: ACUTE TONSILLITIS
     Route: 041
     Dates: start: 20050525

REACTIONS (1)
  - DIZZINESS [None]
